FAERS Safety Report 14055312 (Version 1)
Quarter: 2017Q4

REPORT INFORMATION
  Report Type: Spontaneous
  Country: US (occurrence: US)
  Receive Date: 20171006
  Receipt Date: 20171006
  Transmission Date: 20180321
  Serious: No
  Sender: FDA-Public Use
  Company Number: US-JNJFOC-20170814386

PATIENT
  Age: 63 Year
  Sex: Female
  Weight: 54.89 kg

DRUGS (2)
  1. WOMENS ROGAINE UNSCENTED [Suspect]
     Active Substance: MINOXIDIL
     Route: 061
  2. WOMENS ROGAINE UNSCENTED [Suspect]
     Active Substance: MINOXIDIL
     Indication: ALOPECIA
     Route: 061
     Dates: start: 20170814

REACTIONS (4)
  - Incorrect dose administered [Recovering/Resolving]
  - Wrong technique in product usage process [Recovering/Resolving]
  - Hair texture abnormal [Recovering/Resolving]
  - Product quality issue [Unknown]
